FAERS Safety Report 5098820-6 (Version None)
Quarter: 2006Q3

REPORT INFORMATION
  Report Type: 
  Country: None (occurrence: None)
  Receive Date: 20060907
  Receipt Date: 20060822
  Transmission Date: 20061208
  Serious: Yes (Hospitalization)
  Sender: FDA-Public Use
  Company Number: CA-ROCHE-460505

PATIENT
  Age: 50 Year
  Sex: Male

DRUGS (7)
  1. PEGASYS [Suspect]
     Indication: HEPATITIS C
     Dosage: FORMULATION REPORTED AS PFS.
     Route: 058
     Dates: start: 20060421, end: 20060722
  2. COPEGUS [Suspect]
     Indication: HEPATITIS C
     Route: 048
     Dates: start: 20060421, end: 20060527
  3. COPEGUS [Suspect]
     Route: 048
     Dates: start: 20060528, end: 20060728
  4. IBUPROFEN [Concomitant]
     Indication: ARTHRALGIA
     Route: 048
  5. TYLENOL [Concomitant]
     Indication: ARTHRALGIA
     Dosage: DRUG REPORTED AS ACETAMINOPHEN/TYLENOL.
     Route: 048
  6. MULTIVITAMIN NOS [Concomitant]
     Indication: PROPHYLAXIS
     Route: 048
  7. B COMPLEX 50 [Concomitant]
     Indication: PROPHYLAXIS
     Dosage: DRUG REPORTED AS VITAMIN B50.

REACTIONS (5)
  - DEPRESSION [None]
  - HAEMODIALYSIS [None]
  - HAEMOGLOBIN DECREASED [None]
  - PNEUMONIA [None]
  - RENAL FAILURE ACUTE [None]
